FAERS Safety Report 11450203 (Version 1)
Quarter: 2015Q3

REPORT INFORMATION
  Report Type: Spontaneous
  Country: US (occurrence: US)
  Receive Date: 20150903
  Receipt Date: 20150903
  Transmission Date: 20151125
  Serious: No
  Sender: FDA-Public Use
  Company Number: US-ROCHE-1039879

PATIENT
  Sex: Female

DRUGS (4)
  1. RIBASPHERE RIBAPAK [Suspect]
     Active Substance: RIBAVIRIN
     Indication: CHRONIC HEPATITIS C
     Dosage: DIVIDED DOSES
     Route: 048
     Dates: start: 20111230, end: 20120608
  2. RIBASPHERE RIBAPAK [Suspect]
     Active Substance: RIBAVIRIN
     Route: 065
     Dates: end: 20120316
  3. PEGASYS [Suspect]
     Active Substance: PEGINTERFERON ALFA-2A
     Indication: CHRONIC HEPATITIS C
     Route: 058
     Dates: start: 20111230, end: 20120608
  4. INCIVEK [Suspect]
     Active Substance: TELAPREVIR
     Indication: CHRONIC HEPATITIS C
     Route: 065
     Dates: start: 20111230, end: 20120316

REACTIONS (9)
  - Pruritus [Unknown]
  - Ageusia [Unknown]
  - Insomnia [Unknown]
  - Alopecia [Not Recovered/Not Resolved]
  - Haemoglobin decreased [Unknown]
  - Fatigue [Unknown]
  - Anaemia [Unknown]
  - Rash generalised [Unknown]
  - Malaise [Unknown]
